FAERS Safety Report 6854114-7 (Version None)
Quarter: 2010Q3

REPORT INFORMATION
  Report Type: 
  Country: None (occurrence: None)
  Receive Date: 20100717
  Receipt Date: 20071227
  Transmission Date: 20110219
  Serious: Yes (Other)
  Sender: FDA-Public Use
  Company Number: US-PFIZER INC-2008000612

PATIENT

DRUGS (1)
  1. CHANTIX [Suspect]
     Indication: SMOKING CESSATION THERAPY
     Dates: start: 20071001

REACTIONS (4)
  - AGGRESSION [None]
  - AGITATION [None]
  - DEPRESSION [None]
  - SUICIDAL IDEATION [None]
